FAERS Safety Report 5532011-7 (Version None)
Quarter: 2007Q4

REPORT INFORMATION
  Report Type: 
  Country: None (occurrence: None)
  Receive Date: 20071203
  Receipt Date: 20071126
  Transmission Date: 20080405
  Serious: Yes (Hospitalization)
  Sender: FDA-Public Use
  Company Number: JP-MERCK-0711USA03956

PATIENT
  Age: 74 Year
  Sex: Male

DRUGS (5)
  1. COZAAR [Suspect]
     Indication: HYPERTENSION
     Route: 048
     Dates: start: 20070514, end: 20070101
  2. LANIRAPID [Concomitant]
     Route: 048
  3. AMINO ACIDS (UNSPECIFIED) AND CARBOHYDRATES (UNSPECIFIED) AND ELECTROL [Concomitant]
     Route: 065
  4. NITRODERM [Concomitant]
     Route: 065
  5. SILECE [Concomitant]
     Route: 065

REACTIONS (1)
  - DECREASED APPETITE [None]
